FAERS Safety Report 25867006 (Version 1)
Quarter: 2025Q4

REPORT INFORMATION
  Report Type: Spontaneous
  Country: GB (occurrence: None)
  Receive Date: 20251001
  Receipt Date: 20251001
  Transmission Date: 20260118
  Serious: Yes (Other)
  Sender: ENDO
  Company Number: GB-ENDO USA, INC.-2025-001966

PATIENT
  Sex: Female

DRUGS (2)
  1. TESTOSTERONE [Suspect]
     Active Substance: TESTOSTERONE
     Indication: Transgender hormonal therapy
     Dosage: UNK UNKNOWN, UNKNOWN
     Route: 065
  2. TESTOSTERONE [Suspect]
     Active Substance: TESTOSTERONE
     Dosage: UNK UNKNOWN, UNKNOWN (DOSE DECREASED)
     Route: 065

REACTIONS (3)
  - Pelvic pain [Not Recovered/Not Resolved]
  - Anorgasmia [Unknown]
  - Off label use [Not Recovered/Not Resolved]
